FAERS Safety Report 4613878-3 (Version None)
Quarter: 2005Q1

REPORT INFORMATION
  Report Type: 
  Country: None (occurrence: None)
  Receive Date: 20050316
  Receipt Date: 20050311
  Transmission Date: 20050727
  Serious: Yes (Life-Threatening, Hospitalization)
  Sender: FDA-Public Use
  Company Number: TPG2005A00010

PATIENT
  Age: 31 Year
  Sex: Female

DRUGS (2)
  1. ENANTONE-GYN MONATSDEPOT (LEUPROLIDE ACETATE) (3.75 MILLIGRAM, INJECTI [Suspect]
     Indication: ENDOMETRIOSIS
     Dosage: 3.75 MG (3.75 MG, 1 IN 1 M)
     Route: 058
     Dates: start: 19980101, end: 19980101
  2. ENANTONE-GYN MONATSDEPOT (LEUPROLIDE ACETATE) (3.75 MILLIGRAM, INJECTI [Suspect]
     Indication: ENDOMETRIOSIS
     Dosage: 3.75 MG (3.75 MG, 1 IN 1 M)
     Route: 058
     Dates: start: 20040201, end: 20040601

REACTIONS (15)
  - ASTHENIA [None]
  - BEDRIDDEN [None]
  - CARDIOVASCULAR DISORDER [None]
  - COLLAGEN DISORDER [None]
  - DIABETES INSIPIDUS [None]
  - DISTURBANCE IN ATTENTION [None]
  - HOT FLUSH [None]
  - HYPOPITUITARISM [None]
  - INFECTION [None]
  - INSOMNIA [None]
  - OESTRADIOL DECREASED [None]
  - PERIPHERAL VASCULAR DISORDER [None]
  - UNEVALUABLE EVENT [None]
  - VASCULITIS [None]
  - WEIGHT DECREASED [None]
